FAERS Safety Report 6633299-1 (Version None)
Quarter: 2010Q1

REPORT INFORMATION
  Report Type: 
  Country: None (occurrence: None)
  Receive Date: 20100312
  Receipt Date: 20091130
  Transmission Date: 20100710
  Serious: No
  Sender: FDA-Public Use
  Company Number: US-ABBOTT-09P-163-0612748-00

PATIENT
  Sex: Female

DRUGS (2)
  1. ERYPED [Suspect]
     Indication: IMPAIRED GASTRIC EMPTYING
     Dosage: 1 TEASPOON OF 200 MG/5ML SUSPENSION DAILY
     Dates: start: 20091128, end: 20091128
  2. ERYPED [Suspect]
     Indication: GASTRIC HYPOMOTILITY

REACTIONS (1)
  - OEDEMA MOUTH [None]
